FAERS Safety Report 6297201-7 (Version None)
Quarter: 2009Q3

REPORT INFORMATION
  Report Type: 
  Country: None (occurrence: None)
  Receive Date: 20090804
  Receipt Date: 20090804
  Transmission Date: 20100115
  Serious: Yes (Other)
  Sender: FDA-Public Use
  Company Number: None

PATIENT
  Age: 57 Year
  Sex: Female
  Weight: 54.4316 kg

DRUGS (1)
  1. SIMVASTATIN [Suspect]
     Indication: HYPERCHOLESTEROLAEMIA
     Dosage: 40 MG MOUTH, 20 MG BEGAN 11/08; 40 MG BEGAN 1/12/09
     Route: 048
     Dates: start: 20081101

REACTIONS (3)
  - ASTHENIA [None]
  - FATIGUE [None]
  - MUSCULAR WEAKNESS [None]
